FAERS Safety Report 6995861-6 (Version None)
Quarter: 2010Q3

REPORT INFORMATION
  Report Type: 
  Country: None (occurrence: None)
  Receive Date: 20100918
  Receipt Date: 20081104
  Transmission Date: 20110219
  Serious: No
  Sender: FDA-Public Use
  Company Number: US-WYE-H06669108

PATIENT
  Age: 30 Year
  Sex: Female

DRUGS (6)
  1. EFFEXOR XR [Suspect]
     Indication: DEPRESSION
     Route: 048
     Dates: start: 20070101
  2. EFFEXOR XR [Suspect]
     Dosage: INCREASED BY 37.5 MG UNTIL 150 MG DAILY
     Route: 048
  3. EFFEXOR XR [Suspect]
     Route: 048
  4. EFFEXOR XR [Suspect]
     Route: 048
  5. EFFEXOR XR [Suspect]
  6. BUPROPION HYDROCHLORIDE [Suspect]
     Dosage: UNKNOWN

REACTIONS (4)
  - DRUG EFFECT DECREASED [None]
  - DRUG INTOLERANCE [None]
  - FATIGUE [None]
  - INSOMNIA [None]
